FAERS Safety Report 21765261 (Version 3)
Quarter: 2023Q1

REPORT INFORMATION
  Report Type: Spontaneous
  Country: JP (occurrence: JP)
  Receive Date: 20221222
  Receipt Date: 20230121
  Transmission Date: 20230417
  Serious: Yes (Hospitalization, Other)
  Sender: FDA-Public Use
  Company Number: JP-Accord-292873

PATIENT
  Age: 29 Year
  Sex: Male

DRUGS (1)
  1. CLOZAPINE [Suspect]
     Active Substance: CLOZAPINE
     Indication: Schizoaffective disorder

REACTIONS (8)
  - Hypertension [Unknown]
  - Drug withdrawal syndrome [Recovering/Resolving]
  - Cardiac failure [Recovering/Resolving]
  - Rhabdomyolysis [Unknown]
  - Catatonia [Recovering/Resolving]
  - Cardiomyopathy [Recovering/Resolving]
  - Malignant catatonia [Recovering/Resolving]
  - Congestive cardiomyopathy [Recovering/Resolving]
